FAERS Safety Report 5473320-X (Version None)
Quarter: 2007Q4

REPORT INFORMATION
  Report Type: 
  Country: None (occurrence: None)
  Receive Date: 20071001
  Receipt Date: 20070921
  Transmission Date: 20080405
  Serious: Yes (Hospitalization)
  Sender: FDA-Public Use
  Company Number: US-JNJFOC-20070600196

PATIENT
  Sex: Female
  Weight: 62.14 kg

DRUGS (3)
  1. DURAGESIC-100 [Suspect]
     Indication: BACK PAIN
     Route: 062
  2. ACTIVELLA [Concomitant]
     Indication: HORMONE REPLACEMENT THERAPY
     Route: 048
  3. XANAX [Concomitant]
     Indication: DEPRESSION
     Route: 048

REACTIONS (10)
  - AMNESIA [None]
  - BACK DISORDER [None]
  - BACK PAIN [None]
  - DEPRESSION [None]
  - INCORRECT DRUG ADMINISTRATION DURATION [None]
  - MUSCULOSKELETAL STIFFNESS [None]
  - PHARMACEUTICAL PRODUCT COMPLAINT [None]
  - RESTLESS LEGS SYNDROME [None]
  - SWELLING [None]
  - WEIGHT INCREASED [None]
